FAERS Safety Report 9253893 (Version 1)
Quarter: 2013Q1

REPORT INFORMATION
  Report Type: Spontaneous
  Country: US (occurrence: None)
  Receive Date: 20121203
  Receipt Date: 20121203
  Transmission Date: 20140127
  Serious: Yes (Hospitalization)
  Sender: FDA-Public Use
  Company Number: 2011SP005535

PATIENT
  Age: 31 Year
  Sex: Female
  Weight: 110.7 kg

DRUGS (2)
  1. NUVARING (ETONOGESTREL (+) ETHINYL ESTRADIOL) VAGINAL RING [Suspect]
     Indication: CONTRACEPTION
     Route: 048
     Dates: start: 20060508
  2. ACETAMINOPHEN (+) HYDROCODONE BITARTRATE (HYDROCODONE BITARTRATE, ACETAMINOPHEN) [Concomitant]

REACTIONS (8)
  - Deep vein thrombosis [None]
  - Emotional disorder [None]
  - Mental disorder [None]
  - Musculoskeletal chest pain [None]
  - Weight increased [None]
  - Vaginal infection [None]
  - Oedema peripheral [None]
  - Fatigue [None]
